FAERS Safety Report 5307698-4 (Version None)
Quarter: 2007Q2

REPORT INFORMATION
  Report Type: 
  Country: None (occurrence: None)
  Receive Date: 20070425
  Receipt Date: 20070413
  Transmission Date: 20071010
  Serious: Yes (Other)
  Sender: FDA-Public Use
  Company Number: US-PFIZER INC-2005093128

PATIENT
  Sex: Female
  Weight: 83.5 kg

DRUGS (13)
  1. SILDENAFIL (PAH) [Suspect]
     Indication: PULMONARY HYPERTENSION
     Route: 048
  2. SILDENAFIL (PAH) [Suspect]
  3. SILDENAFIL (PAH) [Suspect]
     Route: 048
  4. LASIX [Concomitant]
  5. PREVACID [Concomitant]
  6. CARTIA XT [Concomitant]
  7. DIGITEK [Concomitant]
  8. ZELNORM [Concomitant]
  9. LOTENSIN [Concomitant]
  10. WELLBUTRIN XL [Concomitant]
  11. COMBIVENT [Concomitant]
     Route: 055
  12. ALBUTEROL [Concomitant]
  13. VIAGRA [Concomitant]

REACTIONS (20)
  - ABDOMINAL DISTENSION [None]
  - COUGH [None]
  - DRUG EFFECT DECREASED [None]
  - DRUG INEFFECTIVE [None]
  - DYSPNOEA [None]
  - FLUSHING [None]
  - HEADACHE [None]
  - HERPES ZOSTER [None]
  - INFLUENZA LIKE ILLNESS [None]
  - INSOMNIA [None]
  - MIGRAINE [None]
  - NASOPHARYNGITIS [None]
  - PAIN [None]
  - PSORIASIS [None]
  - PULMONARY ARTERIAL PRESSURE INCREASED [None]
  - SINUS DISORDER [None]
  - SYNCOPE [None]
  - VISUAL ACUITY REDUCED [None]
  - VISUAL DISTURBANCE [None]
  - WEIGHT INCREASED [None]
